FAERS Safety Report 12542493 (Version 1)
Quarter: 2016Q3

REPORT INFORMATION
  Report Type: Spontaneous
  Country: JP (occurrence: JP)
  Receive Date: 20160709
  Receipt Date: 20160709
  Transmission Date: 20161109
  Serious: Yes (Death, Other)
  Sender: FDA-Public Use
  Company Number: JP-CIPLA LTD.-2014JP00317

PATIENT
  Age: 72 Year
  Sex: Male

DRUGS (4)
  1. PACLITAXEL. [Suspect]
     Active Substance: PACLITAXEL
     Dosage: 140 MG/M2, ON THE DAY 31 OF THE FIRST CYCLE
     Route: 065
  2. CARBOPLATIN. [Suspect]
     Active Substance: CARBOPLATIN
     Dosage: AUC OF 3.5, ON DAY 31 OF FIRST CYCLE
     Route: 065
  3. CARBOPLATIN. [Suspect]
     Active Substance: CARBOPLATIN
     Indication: NON-SMALL CELL LUNG CANCER STAGE IIIA
     Dosage: AREA UNDER THE CURVE OF 5 ON DAY 1
     Route: 065
  4. PACLITAXEL. [Suspect]
     Active Substance: PACLITAXEL
     Indication: NON-SMALL CELL LUNG CANCER STAGE IIIA
     Dosage: 200 MG/M2, ON DAY 1
     Route: 065

REACTIONS (5)
  - Pancytopenia [Unknown]
  - Febrile neutropenia [Fatal]
  - Septic shock [Fatal]
  - Ileus [Fatal]
  - Neutropenia [Unknown]
